FAERS Safety Report 8050095-1 (Version None)
Quarter: 2011Q4

REPORT INFORMATION
  Report Type: 
  Country: None (occurrence: None)
  Receive Date: 20111212
  Receipt Date: 20111031
  Transmission Date: 20120403
  Serious: Yes (Hospitalization)
  Sender: FDA-Public Use
  Company Number: PHHY2011US69235

PATIENT
  Age: 44 Year
  Sex: Male

DRUGS (1)
  1. EXTAVIA [Suspect]
     Indication: MULTIPLE SCLEROSIS
     Dosage: 0.25MG, QOD, SUBCUTANEOUS
     Route: 058
     Dates: start: 20101001

REACTIONS (5)
  - HYPOAESTHESIA [None]
  - URINARY TRACT INFECTION [None]
  - GRAND MAL CONVULSION [None]
  - GAIT DISTURBANCE [None]
  - BALANCE DISORDER [None]
